FAERS Safety Report 4360061-5 (Version None)
Quarter: 2004Q2

REPORT INFORMATION
  Report Type: 
  Country: None (occurrence: None)
  Receive Date: 20040513
  Receipt Date: 20040505
  Transmission Date: 20050107
  Serious: Yes (Other)
  Sender: FDA-Public Use
  Company Number: 200410312BNE

PATIENT
  Sex: Male

DRUGS (1)
  1. CIPROFLOXACIN [Suspect]
     Indication: CELLULITIS
     Dates: start: 20030901

REACTIONS (6)
  - DYSPNOEA [None]
  - FEELING ABNORMAL [None]
  - MALAISE [None]
  - PALPITATIONS [None]
  - RESPIRATORY DISTRESS [None]
  - VENTRICULAR TACHYCARDIA [None]
